FAERS Safety Report 19782926 (Version 71)
Quarter: 2025Q4

REPORT INFORMATION
  Report Type: Report from Study
  Country: CA (occurrence: CA)
  Receive Date: 20210902
  Receipt Date: 20251223
  Transmission Date: 20260118
  Serious: Yes (Hospitalization, Other)
  Sender: TAKEDA
  Company Number: CA-TAKEDA-CA202025118

PATIENT
  Age: 25 Year
  Sex: Male
  Weight: 17 kg

DRUGS (46)
  1. IDURSULFASE [Suspect]
     Active Substance: IDURSULFASE
     Indication: Mucopolysaccharidosis II
     Dosage: 18.75 MILLIGRAM, 1/WEEK
     Dates: start: 20080403
  2. IDURSULFASE [Suspect]
     Active Substance: IDURSULFASE
     Dosage: 18.75 MILLIGRAM, 1/WEEK
  3. IDURSULFASE [Suspect]
     Active Substance: IDURSULFASE
     Dosage: 4 DOSAGE FORM, 1/WEEK
  4. IDURSULFASE [Suspect]
     Active Substance: IDURSULFASE
     Dosage: 24 MILLIGRAM, 1/WEEK
  5. IDURSULFASE [Suspect]
     Active Substance: IDURSULFASE
     Dosage: 24 MILLIGRAM, 1/WEEK
  6. IDURSULFASE [Suspect]
     Active Substance: IDURSULFASE
     Dosage: 4 DOSAGE FORM, 1/WEEK
  7. IDURSULFASE [Suspect]
     Active Substance: IDURSULFASE
     Dosage: 24 MILLIGRAM, 1/WEEK
  8. IDURSULFASE [Suspect]
     Active Substance: IDURSULFASE
     Dosage: 24 MILLIGRAM, 1/WEEK
  9. IDURSULFASE [Suspect]
     Active Substance: IDURSULFASE
     Dosage: 4 DOSAGE FORM, 1/WEEK
  10. IDURSULFASE [Suspect]
     Active Substance: IDURSULFASE
     Dosage: 4 DOSAGE FORM, 1/WEEK
  11. IDURSULFASE [Suspect]
     Active Substance: IDURSULFASE
     Dosage: 4 DOSAGE FORM, 1/WEEK
  12. IDURSULFASE [Suspect]
     Active Substance: IDURSULFASE
     Dosage: 4 DOSAGE FORM, 1/WEEK
  13. IDURSULFASE [Suspect]
     Active Substance: IDURSULFASE
     Dosage: 24 MILLIGRAM, 1/WEEK
  14. IDURSULFASE [Suspect]
     Active Substance: IDURSULFASE
     Dosage: 24 MILLIGRAM, 1/WEEK
  15. IDURSULFASE [Suspect]
     Active Substance: IDURSULFASE
     Dosage: 4 DOSAGE FORM, 1/WEEK
  16. IDURSULFASE [Suspect]
     Active Substance: IDURSULFASE
     Dosage: 24 MILLIGRAM, 1/WEEK
  17. IDURSULFASE [Suspect]
     Active Substance: IDURSULFASE
     Dosage: 4 DOSAGE FORM, 1/WEEK
  18. IDURSULFASE [Suspect]
     Active Substance: IDURSULFASE
     Dosage: 4 DOSAGE FORM, 1/WEEK
  19. IDURSULFASE [Suspect]
     Active Substance: IDURSULFASE
     Dosage: 24 MILLIGRAM, 1/WEEK
  20. IDURSULFASE [Suspect]
     Active Substance: IDURSULFASE
     Dosage: UNK UNK, 1/WEEK
  21. IDURSULFASE [Suspect]
     Active Substance: IDURSULFASE
     Dosage: 24 MILLIGRAM, 1/WEEK
  22. IDURSULFASE [Suspect]
     Active Substance: IDURSULFASE
     Dosage: 24 MILLIGRAM, 1/WEEK
  23. IDURSULFASE [Suspect]
     Active Substance: IDURSULFASE
     Dosage: UNK UNK, 1/WEEK
  24. IDURSULFASE [Suspect]
     Active Substance: IDURSULFASE
     Dosage: 24 MILLIGRAM, 1/WEEK
  25. IDURSULFASE [Suspect]
     Active Substance: IDURSULFASE
     Dosage: 24 MILLIGRAM, 1/WEEK
  26. IDURSULFASE [Suspect]
     Active Substance: IDURSULFASE
     Dosage: UNK UNK, 1/WEEK
  27. IDURSULFASE [Suspect]
     Active Substance: IDURSULFASE
     Dosage: UNK UNK, 1/WEEK
  28. IDURSULFASE [Suspect]
     Active Substance: IDURSULFASE
     Dosage: 24 MILLIGRAM, 1/WEEK
  29. IDURSULFASE [Suspect]
     Active Substance: IDURSULFASE
     Dosage: UNK UNK, 1/WEEK
  30. IDURSULFASE [Suspect]
     Active Substance: IDURSULFASE
     Dosage: 24 MILLIGRAM, 1/WEEK
  31. IDURSULFASE [Suspect]
     Active Substance: IDURSULFASE
     Dosage: 24 MILLIGRAM, 1/WEEK
  32. IDURSULFASE [Suspect]
     Active Substance: IDURSULFASE
     Dosage: 24 MILLIGRAM, 1/WEEK
  33. IDURSULFASE [Suspect]
     Active Substance: IDURSULFASE
     Dosage: 24 MILLIGRAM, 1/WEEK
  34. IDURSULFASE [Suspect]
     Active Substance: IDURSULFASE
     Dosage: 24 MILLIGRAM, 1/WEEK
  35. IDURSULFASE [Suspect]
     Active Substance: IDURSULFASE
     Dosage: 24 MILLIGRAM, 1/WEEK
  36. IDURSULFASE [Suspect]
     Active Substance: IDURSULFASE
     Dosage: 24 MILLIGRAM, 1/WEEK
  37. IDURSULFASE [Suspect]
     Active Substance: IDURSULFASE
     Dosage: 24MG/0.5MG/KG, 1/WEEK
  38. XARELTO [Concomitant]
     Active Substance: RIVAROXABAN
     Dosage: UNK
  39. AMOXIL [Concomitant]
     Active Substance: AMOXICILLIN
     Dosage: 10.5 MILLILITER, BID
  40. LAMOTRIGINE [Concomitant]
     Active Substance: LAMOTRIGINE
     Dosage: 25 MILLIGRAM, QID
  41. RIVAROXABAN [Concomitant]
     Active Substance: RIVAROXABAN
     Dosage: 15 MILLIGRAM
  42. VITAMIN D3 [Concomitant]
     Active Substance: CHOLECALCIFEROL
     Dosage: 2000 INTERNATIONAL UNIT
  43. IRON [Concomitant]
     Active Substance: IRON
     Dosage: UNK
  44. CIPRODEX [Concomitant]
     Active Substance: CIPROFLOXACIN HYDROCHLORIDE\DEXAMETHASONE
     Dosage: UNK
  45. LEVETIRACETAM [Concomitant]
     Active Substance: LEVETIRACETAM
     Dosage: 12.5 MILLILITER, BID
  46. NORTRIPTYLINE [Concomitant]
     Active Substance: NORTRIPTYLINE
     Dosage: 25 MILLIGRAM

REACTIONS (58)
  - Catheter site discharge [Recovering/Resolving]
  - Catheter site bruise [Recovering/Resolving]
  - Catheter site necrosis [Unknown]
  - Heart rate increased [Unknown]
  - Spinal stenosis [Unknown]
  - Scar [Unknown]
  - Increased bronchial secretion [Recovered/Resolved]
  - Respiratory syncytial virus infection [Recovering/Resolving]
  - Pneumonia [Recovering/Resolving]
  - Swelling face [Recovered/Resolved]
  - Ear haemorrhage [Recovered/Resolved]
  - Malaise [Recovered/Resolved]
  - Oxygen saturation decreased [Recovering/Resolving]
  - COVID-19 [Recovered/Resolved]
  - Ear infection [Recovering/Resolving]
  - Seizure [Recovering/Resolving]
  - Dyspnoea [Recovered/Resolved]
  - Cyanosis [Unknown]
  - Blood pressure increased [Unknown]
  - Respiratory rate decreased [Unknown]
  - Complication associated with device [Recovering/Resolving]
  - Blood pressure decreased [Unknown]
  - Sleep apnoea syndrome [Unknown]
  - Eye disorder [Unknown]
  - Hyperhidrosis [Unknown]
  - Poor quality sleep [Unknown]
  - Vital functions abnormal [Unknown]
  - Abdominal pain upper [Unknown]
  - Infusion site haemorrhage [Recovered/Resolved]
  - Ear discomfort [Unknown]
  - Snoring [Unknown]
  - Respiratory rate increased [Unknown]
  - Heart rate abnormal [Unknown]
  - Catheter site discolouration [Recovering/Resolving]
  - Catheter site scab [Recovering/Resolving]
  - Fatigue [Recovered/Resolved]
  - Infusion related reaction [Recovered/Resolved]
  - Vomiting [Recovered/Resolved]
  - Nausea [Recovered/Resolved]
  - Headache [Unknown]
  - Poor venous access [Recovering/Resolving]
  - Medical device site irritation [Recovering/Resolving]
  - Medical device site erythema [Recovering/Resolving]
  - Hypoaesthesia [Not Recovered/Not Resolved]
  - Product dose omission issue [Unknown]
  - Incorrect dose administered [Unknown]
  - Infusion site haematoma [Recovering/Resolving]
  - Inappropriate schedule of product administration [Recovering/Resolving]
  - Cough [Recovering/Resolving]
  - Pyrexia [Recovering/Resolving]
  - Impaired healing [Recovering/Resolving]
  - Eschar [Recovering/Resolving]
  - Medical device site scar [Unknown]
  - Swelling [Unknown]
  - Pain [Unknown]
  - Respiration abnormal [Unknown]
  - Catheter site pain [Unknown]
  - Body temperature abnormal [Unknown]

NARRATIVE: CASE EVENT DATE: 20200101
